FAERS Safety Report 19961231 (Version 1)
Quarter: 2021Q4

REPORT INFORMATION
  Report Type: Report from Study
  Country: MX (occurrence: MX)
  Receive Date: 20211016
  Receipt Date: 20211016
  Transmission Date: 20220304
  Serious: Yes (Other)
  Sender: FDA-Public Use
  Company Number: MX-NOVARTISPH-NVSC2021MX223168

PATIENT
  Sex: Male
  Weight: 70 kg

DRUGS (1)
  1. DIOVAN [Suspect]
     Active Substance: VALSARTAN
     Indication: Hypertension
     Dosage: 1 DF, BID(APPROXIMATELY 10 YEAR AGO)
     Route: 048

REACTIONS (3)
  - Blindness [Unknown]
  - Hypertension [Unknown]
  - Inappropriate schedule of product administration [Unknown]
